FAERS Safety Report 17876439 (Version 2)
Quarter: 2020Q2

REPORT INFORMATION
  Report Type: Not Available
  Country: US (occurrence: US)
  Receive Date: 20200609
  Receipt Date: 20200623
  Transmission Date: 20200714
  Serious: Yes (Hospitalization)
  Sender: FDA-Public Use
  Company Number: US-NEUROCRINE BIOSCIENCES INC.-2020NBI01759

PATIENT
  Age: 60 Year
  Sex: Male

DRUGS (1)
  1. INGREZZA [Suspect]
     Active Substance: VALBENAZINE
     Indication: TARDIVE DYSKINESIA
     Route: 048
     Dates: start: 201912, end: 20200528

REACTIONS (4)
  - Therapeutic product effect decreased [Unknown]
  - Dyspnoea [Not Recovered/Not Resolved]
  - Confusional state [Unknown]
  - Tremor [Unknown]

NARRATIVE: CASE EVENT DATE: 2020
